FAERS Safety Report 10223948 (Version 1)
Quarter: 2014Q2

REPORT INFORMATION
  Report Type: Spontaneous
  Country: RO (occurrence: None)
  Receive Date: 20140605
  Receipt Date: 20140605
  Transmission Date: 20141212
  Serious: Yes (Hospitalization)
  Sender: FDA-Public Use
  Company Number: 2014P1004438

PATIENT
  Age: 51 Year
  Sex: Male

DRUGS (1)
  1. METHIMAZOLE [Suspect]
     Indication: HYPERTHYROIDISM

REACTIONS (5)
  - No therapeutic response [None]
  - Arthralgia [None]
  - Pruritus [None]
  - Rash macular [None]
  - Haemolytic anaemia [None]
